FAERS Safety Report 4359724-7 (Version None)
Quarter: 2004Q2

REPORT INFORMATION
  Report Type: 
  Country: None (occurrence: None)
  Receive Date: 20040513
  Receipt Date: 20040428
  Transmission Date: 20050107
  Serious: Yes (Other)
  Sender: FDA-Public Use
  Company Number: 2004-0006916

PATIENT
  Age: 34 Year
  Sex: Female
  Weight: 60 kg

DRUGS (4)
  1. VIREAD [Suspect]
     Indication: HIV INFECTION
     Dosage: 300 MG, 1 IN 1 D, ORAL
     Route: 048
     Dates: start: 20040320, end: 20040403
  2. STAVUDINE              (STAVUDINE) [Concomitant]
  3. LAMIVUDINE           (LAMIVUDINE) [Concomitant]
  4. LEXOMIL            (BROMAZEPAM) [Concomitant]

REACTIONS (1)
  - HEPATITIS C [None]
